FAERS Safety Report 25361650 (Version 1)
Quarter: 2025Q2

REPORT INFORMATION
  Report Type: Report from Study
  Country: US (occurrence: US)
  Receive Date: 20250527
  Receipt Date: 20250527
  Transmission Date: 20250716
  Serious: Yes (Hospitalization)
  Sender: PTC THERAPEUTICS
  Company Number: US-PTC THERAPEUTICS INC.-US-2025PTC000585

PATIENT
  Age: 19 Year
  Sex: Male

DRUGS (1)
  1. EMFLAZA [Suspect]
     Active Substance: DEFLAZACORT
     Indication: Product used for unknown indication
     Dosage: 18 MG TAB, 36 MG TAB (TOTAL DOSE: 54 MG), QD
     Route: 048

REACTIONS (2)
  - Nephrolithiasis [Unknown]
  - Blood calcium decreased [Unknown]

NARRATIVE: CASE EVENT DATE: 20231201
